FAERS Safety Report 15081268 (Version 1)
Quarter: 2018Q2

REPORT INFORMATION
  Report Type: Spontaneous
  Country: US (occurrence: US)
  Receive Date: 20180628
  Receipt Date: 20180628
  Transmission Date: 20180711
  Serious: No
  Sender: FDA-Public Use
  Company Number: US-ACCORD-065986

PATIENT
  Age: 73 Year
  Sex: Female
  Weight: 87.09 kg

DRUGS (15)
  1. MAGNESIUM CITRATE. [Concomitant]
     Active Substance: MAGNESIUM CITRATE
     Indication: CONSTIPATION
  2. CLONAZEPAM ACCORD [Suspect]
     Active Substance: CLONAZEPAM
     Indication: ANXIETY
     Dosage: STARTED TAKING 2 MG BID (QAM AND QPM) AND THEN DECREASED THE DOSE (1 MG QHS AND QAM)
     Route: 048
  3. PAROXETINE. [Concomitant]
     Active Substance: PAROXETINE
     Dosage: TOTAL OF 35 MG DAILY
  4. ESTRADIOL. [Concomitant]
     Active Substance: ESTRADIOL
     Dosage: 1 MG QHS
  5. HYDROXYZINE [Concomitant]
     Active Substance: HYDROXYZINE HYDROCHLORIDE
  6. CYANOCOBALAMIN. [Concomitant]
     Active Substance: CYANOCOBALAMIN
  7. RESTASIS [Concomitant]
     Active Substance: CYCLOSPORINE
  8. VACCINIUM MACROCARPON [Concomitant]
     Active Substance: CRANBERRY
     Dosage: 900 MG BID
  9. FLUTICASONE. [Concomitant]
     Active Substance: FLUTICASONE
  10. LAMICTAL [Concomitant]
     Active Substance: LAMOTRIGINE
     Dosage: 300 MG QD
  11. CYANOCOBALAMIN. [Concomitant]
     Active Substance: CYANOCOBALAMIN
  12. ATROVENT [Concomitant]
     Active Substance: IPRATROPIUM BROMIDE
     Dosage: PRN
  13. SYNTHROID [Concomitant]
     Active Substance: LEVOTHYROXINE SODIUM
     Dosage: 100 MCG QAM
  14. RITALIN [Concomitant]
     Active Substance: METHYLPHENIDATE HYDROCHLORIDE
     Dosage: 2 PO AM
     Route: 048
  15. XANTOFYL [Concomitant]

REACTIONS (6)
  - Fatigue [Unknown]
  - Asthenia [Unknown]
  - Balance disorder [Unknown]
  - Hypertension [Unknown]
  - Visual impairment [Unknown]
  - Constipation [Unknown]
